FAERS Safety Report 13836304 (Version 1)
Quarter: 2017Q3

REPORT INFORMATION
  Report Type: Spontaneous
  Country: SE (occurrence: SE)
  Receive Date: 20170804
  Receipt Date: 20170804
  Transmission Date: 20171127
  Serious: Yes (Death, Life-Threatening, Other)
  Sender: FDA-Public Use
  Company Number: SE-ALLERGAN-1733138US

PATIENT
  Age: 45 Year
  Sex: Female

DRUGS (6)
  1. QUETIAPINE. [Concomitant]
     Active Substance: QUETIAPINE
  2. ZOPICLONE [Concomitant]
     Active Substance: ZOPICLONE
  3. PROPIOMAZINE [Concomitant]
     Active Substance: PROPIOMAZINE
  4. DIAZEPAM. [Concomitant]
     Active Substance: DIAZEPAM
  5. FLUOXETINE HCL UNK [Suspect]
     Active Substance: FLUOXETINE HYDROCHLORIDE
     Indication: PRODUCT USED FOR UNKNOWN INDICATION
  6. BUPROPION. [Concomitant]
     Active Substance: BUPROPION

REACTIONS (2)
  - Intentional overdose [Fatal]
  - Toxicity to various agents [Fatal]
